FAERS Safety Report 4367321-2 (Version None)
Quarter: 2004Q2

REPORT INFORMATION
  Report Type: 
  Country: None (occurrence: None)
  Receive Date: 20040527
  Receipt Date: 20040514
  Transmission Date: 20050107
  Serious: Yes (Other)
  Sender: FDA-Public Use
  Company Number: FLUV00303002819

PATIENT
  Age: 28 Year
  Sex: Male

DRUGS (2)
  1. FLUVOXAMINE MALEATE [Suspect]
     Indication: PANIC DISORDER
     Dosage: 50 MG DAILY PO, 150 MG DAILY PO
     Route: 048
  2. ALPRAZOLAM [Suspect]
     Indication: PANIC DISORDER
     Dosage: 2 MG DAILY PO, 1.2 MG DAILY PO, 1.2 MG DAILY PO
     Route: 048

REACTIONS (6)
  - DELUSION [None]
  - DELUSION OF REFERENCE [None]
  - DEPENDENT PERSONALITY DISORDER [None]
  - HALLUCINATION, AUDITORY [None]
  - SCHIZOPHRENIFORM DISORDER [None]
  - THOUGHT BROADCASTING [None]
